FAERS Safety Report 4635557-9 (Version None)
Quarter: 2005Q2

REPORT INFORMATION
  Report Type: 
  Country: None (occurrence: None)
  Receive Date: 20050413
  Receipt Date: 20050401
  Transmission Date: 20051028
  Serious: Yes (Other)
  Sender: FDA-Public Use
  Company Number: 2004047157

PATIENT
  Age: 14 Year
  Sex: Male
  Weight: 40.8237 kg

DRUGS (2)
  1. NEURONTIN [Suspect]
     Indication: CEREBRAL PALSY
     Dosage: 600 MG (200 MG , 3 IN 1 D), ORAL
     Route: 048
  2. NEURONTIN [Suspect]
     Indication: MUSCLE SPASTICITY
     Dosage: 600 MG (200 MG , 3 IN 1 D), ORAL
     Route: 048

REACTIONS (4)
  - EMOTIONAL DISORDER [None]
  - GROWTH ACCELERATED [None]
  - PHARMACEUTICAL PRODUCT COMPLAINT [None]
  - THERAPY NON-RESPONDER [None]
